FAERS Safety Report 20184571 (Version 2)
Quarter: 2022Q1

REPORT INFORMATION
  Report Type: Spontaneous
  Country: JP (occurrence: JP)
  Receive Date: 20211214
  Receipt Date: 20220207
  Transmission Date: 20220423
  Serious: Yes (Other)
  Sender: FDA-Public Use
  Company Number: JP-BRISTOL-MYERS SQUIBB COMPANY-BMS-2021-133519

PATIENT
  Age: 9 Decade
  Sex: Male

DRUGS (4)
  1. ELIQUIS [Suspect]
     Active Substance: APIXABAN
     Indication: Cerebrovascular accident prophylaxis
     Dosage: 2.5 MILLIGRAM, BID, AFTER BREAKFAST AND DINNER, 77DAYS
     Route: 065
  2. CINEPAZIDE MALEATE [Concomitant]
     Active Substance: CINEPAZIDE MALEATE
     Indication: Atrial fibrillation
     Dosage: ON EXERTION, 10 TIMES
     Route: 065
  3. CINEPAZIDE MALEATE [Concomitant]
     Active Substance: CINEPAZIDE MALEATE
     Dosage: 1 TAB, TID, 8 HOURS APART
     Route: 065
  4. CIFENLINE SUCCINATE [Concomitant]
     Active Substance: CIFENLINE SUCCINATE
     Indication: Atrial fibrillation
     Route: 065

REACTIONS (6)
  - Myelodysplastic syndrome [Unknown]
  - Renal impairment [Unknown]
  - Normochromic normocytic anaemia [Unknown]
  - Chronic gastritis [Unknown]
  - Colon adenoma [Unknown]
  - Occult blood positive [Unknown]

NARRATIVE: CASE EVENT DATE: 20210101
